FAERS Safety Report 8025100-9 (Version None)
Quarter: 2012Q1

REPORT INFORMATION
  Report Type: 
  Country: None (occurrence: None)
  Receive Date: 20120105
  Receipt Date: 20120102
  Transmission Date: 20120608
  Serious: Yes (Hospitalization)
  Sender: FDA-Public Use
  Company Number: FR-ROCHE-1026921

PATIENT
  Age: 35 Year
  Sex: Female

DRUGS (4)
  1. GANCICLOVIR SODIUM [Suspect]
     Indication: PRODUCT USED FOR UNKNOWN INDICATION
     Dates: start: 20111207, end: 20111215
  2. SANDIMMUNE [Suspect]
     Indication: PRODUCT USED FOR UNKNOWN INDICATION
     Dates: start: 20111206
  3. OFLOXACIN [Suspect]
     Indication: PRODUCT USED FOR UNKNOWN INDICATION
     Dates: start: 20111206, end: 20111212
  4. FLAGYL [Suspect]
     Indication: PRODUCT USED FOR UNKNOWN INDICATION
     Dates: start: 20111206, end: 20111211

REACTIONS (6)
  - PARAESTHESIA [None]
  - INSOMNIA [None]
  - GLOSSITIS [None]
  - RASH [None]
  - ERYTHEMA [None]
  - PALPITATIONS [None]
